FAERS Safety Report 6788708-4 (Version None)
Quarter: 2010Q2

REPORT INFORMATION
  Report Type: 
  Country: None (occurrence: None)
  Receive Date: 20100623
  Receipt Date: 20080505
  Transmission Date: 20101027
  Serious: No
  Sender: FDA-Public Use
  Company Number: US-PFIZER INC-2008038950

PATIENT
  Sex: Male

DRUGS (2)
  1. XALATAN [Suspect]
  2. GENTEAL [Interacting]
     Indication: DRY EYE

REACTIONS (2)
  - DRUG INTERACTION [None]
  - DRY EYE [None]
